FAERS Safety Report 9103656 (Version 1)
Quarter: 2013Q1

REPORT INFORMATION
  Report Type: Spontaneous
  Country: GB (occurrence: GB)
  Receive Date: 20130219
  Receipt Date: 20130219
  Transmission Date: 20140127
  Serious: Yes (Life-Threatening, Other)
  Sender: FDA-Public Use
  Company Number: GB-PFIZER INC-2013060017

PATIENT
  Age: 72 Year
  Sex: Female
  Weight: 90 kg

DRUGS (9)
  1. TIGECYCLINE [Suspect]
     Indication: LOWER RESPIRATORY TRACT INFECTION
     Dosage: 50 MG, 2X/DAY
     Route: 042
     Dates: start: 20130121, end: 20130202
  2. FOLIC ACID [Concomitant]
  3. ISOSORBIDE MONONITRATE [Concomitant]
  4. NICORANDIL [Concomitant]
  5. ASPIRIN [Concomitant]
  6. SIMVASTATIN [Concomitant]
  7. ATENOLOL [Concomitant]
  8. TEMAZEPAM [Concomitant]
  9. METHOTREXATE [Concomitant]
     Dosage: LONG TERM

REACTIONS (3)
  - Toxicity to various agents [Not Recovered/Not Resolved]
  - Pancytopenia [Not Recovered/Not Resolved]
  - Vomiting [Unknown]
